FAERS Safety Report 20212076 (Version 1)
Quarter: 2021Q4

REPORT INFORMATION
  Report Type: Other
  Country: US (occurrence: US)
  Receive Date: 20211221
  Receipt Date: 20211221
  Transmission Date: 20220303
  Serious: Yes (Hospitalization)
  Sender: FDA-Public Use
  Company Number: US-ACORDA-ACO_171022_2021

PATIENT
  Age: 72 Year
  Sex: Male

DRUGS (2)
  1. INBRIJA [Suspect]
     Active Substance: LEVODOPA
     Indication: Parkinson^s disease
     Dosage: 2 CAPSULES, PRN (DO NOT EXCEED 5 DOSES IN 1 DAY)
     Dates: start: 20211029
  2. INBRIJA [Suspect]
     Active Substance: LEVODOPA
     Indication: On and off phenomenon

REACTIONS (2)
  - Post procedural infection [Not Recovered/Not Resolved]
  - Deep brain stimulation [Not Recovered/Not Resolved]

NARRATIVE: CASE EVENT DATE: 20211123
